FAERS Safety Report 5816749-X (Version None)
Quarter: 2008Q3

REPORT INFORMATION
  Report Type: 
  Country: None (occurrence: None)
  Receive Date: 20080721
  Receipt Date: 20080707
  Transmission Date: 20090109
  Serious: No
  Sender: FDA-Public Use
  Company Number: US-BOEHRINGER INGELHEIM GMBH, GERMANY-2008-BP-10567BP

PATIENT
  Age: 47 Year
  Sex: Male

DRUGS (2)
  1. FLOMAX [Suspect]
     Indication: PROSTATOMEGALY
     Route: 048
     Dates: start: 20080501
  2. VESICARE [Suspect]
     Indication: BLADDER DISORDER
     Dates: start: 20080701

REACTIONS (1)
  - DIZZINESS [None]
